FAERS Safety Report 14075515 (Version 2)
Quarter: 2017Q4

REPORT INFORMATION
  Report Type: Spontaneous
  Country: US (occurrence: US)
  Receive Date: 20171011
  Receipt Date: 20171114
  Transmission Date: 20180321
  Serious: Yes (Hospitalization)
  Sender: FDA-Public Use
  Company Number: US-ASTRAZENECA-2017SF03955

PATIENT
  Sex: Female
  Weight: 98.4 kg

DRUGS (1)
  1. BYDUREON [Suspect]
     Active Substance: EXENATIDE
     Indication: TYPE 2 DIABETES MELLITUS
     Route: 058
     Dates: start: 20170907

REACTIONS (3)
  - Chest pain [Unknown]
  - Liquid product physical issue [Unknown]
  - Drug dose omission [Not Recovered/Not Resolved]
